FAERS Safety Report 5515194-4 (Version None)
Quarter: 2007Q4

REPORT INFORMATION
  Report Type: 
  Country: None (occurrence: None)
  Receive Date: 20071113
  Receipt Date: 20070205
  Transmission Date: 20080405
  Serious: No
  Sender: FDA-Public Use
  Company Number: A0638340A

PATIENT
  Age: 79 Year
  Sex: Female

DRUGS (7)
  1. COREG [Suspect]
     Dosage: 6.25MG PER DAY
     Route: 048
     Dates: start: 20070101
  2. GLUCOTROL [Concomitant]
  3. PLAVIX [Concomitant]
  4. PRAVACHOL [Concomitant]
  5. FUROSEMIDE [Concomitant]
  6. ZANTAC [Concomitant]
  7. SYNTHROID [Concomitant]

REACTIONS (1)
  - DYSPNOEA [None]
